FAERS Safety Report 9354830 (Version 1)
Quarter: 2013Q2

REPORT INFORMATION
  Report Type: Spontaneous
  Country: US (occurrence: None)
  Receive Date: 20130618
  Receipt Date: 20130618
  Transmission Date: 20140414
  Serious: Yes (Death)
  Sender: FDA-Public Use
  Company Number: None

PATIENT
  Age: 66 Year
  Sex: Female
  Weight: 64.41 kg

DRUGS (15)
  1. PAZOPANIB [Suspect]
     Indication: LEIOMYOSARCOMA
     Route: 048
     Dates: start: 20130321, end: 20130322
  2. GEMCITABINE [Suspect]
     Indication: LEIOMYOSARCOMA
     Route: 042
     Dates: start: 20130320, end: 20130320
  3. ASCORBIC ACID SR -VITAMIN C- [Concomitant]
  4. PRAVASTATIN [Concomitant]
  5. ASPIRIN [Concomitant]
  6. PROPRANOLOL HCL -INDERAL- [Concomitant]
  7. CHOLECALCIFEROL, VITAMIN D3, -VITAMIN D- [Concomitant]
  8. CLONAZEPAM [Concomitant]
  9. SERTRALINE HCL -ZOLOFT- [Concomitant]
  10. FUROSEMIDE [Concomitant]
  11. TRIAZOLAM [Concomitant]
  12. HYDROCODONE-ACETAMINOPHEN -VICODIN- [Concomitant]
  13. OMEGA-3 FATTY ACIDS-VITAMIN 3 -FISH OIL- [Concomitant]
  14. OMEPRAZOLE [Concomitant]
  15. POTASSIUM -POTASSIMIN ORAL- [Concomitant]

REACTIONS (7)
  - Fatigue [None]
  - Back pain [None]
  - Malaise [None]
  - Altered state of consciousness [None]
  - Hepatic failure [None]
  - Renal failure acute [None]
  - Metastases to liver [None]
